FAERS Safety Report 12609528 (Version 1)
Quarter: 2016Q3

REPORT INFORMATION
  Report Type: Spontaneous
  Country: DE (occurrence: DE)
  Receive Date: 20160801
  Receipt Date: 20160801
  Transmission Date: 20161109
  Serious: Yes (Hospitalization)
  Sender: FDA-Public Use
  Company Number: DE-PFIZER INC-2016349086

PATIENT
  Age: 44 Year
  Sex: Male
  Weight: 107 kg

DRUGS (5)
  1. HYDROCORTISONE. [Interacting]
     Active Substance: HYDROCORTISONE
     Dosage: 1 TABLET 10 MG PER DAY
     Dates: start: 2014
  2. DOSTINEX [Concomitant]
     Active Substance: CABERGOLINE
     Indication: BLOOD PROLACTIN INCREASED
     Dosage: 1 DF, 1X/DAY
  3. CORTISON [Interacting]
     Active Substance: CORTISONE ACETATE
     Dosage: UNK
  4. CANDESARTAN 1 A PHARMA [Suspect]
     Active Substance: CANDESARTAN
     Indication: HYPERTENSION
     Dosage: 1 DF, 1X/DAY
     Route: 048
     Dates: start: 20160615
  5. HYDROCORTISON [Suspect]
     Active Substance: HYDROCORTISONE
     Dosage: 10 MG, 1X/DAY
     Dates: start: 2014

REACTIONS (8)
  - Skin tightness [Unknown]
  - Immune system disorder [Unknown]
  - Rash generalised [Unknown]
  - Hypertension [Unknown]
  - Pruritus [Unknown]
  - Drug interaction [Unknown]
  - Localised infection [Unknown]
  - Erythema [Unknown]

NARRATIVE: CASE EVENT DATE: 20160701
